FAERS Safety Report 9694800 (Version 2)
Quarter: 2013Q4

REPORT INFORMATION
  Report Type: Spontaneous
  Country: BR (occurrence: BR)
  Receive Date: 20131119
  Receipt Date: 20131119
  Transmission Date: 20140711
  Serious: Yes (Hospitalization, Other)
  Sender: FDA-Public Use
  Company Number: BR-PFIZER INC-2012037004

PATIENT
  Age: 83 Year
  Sex: Female
  Weight: 56 kg

DRUGS (5)
  1. ATENOLOL [Suspect]
     Indication: HYPERTENSION
     Dosage: 25 MG, DAILY
     Route: 048
  2. ATACAND HCT [Suspect]
     Indication: HYPERTENSION
     Dosage: 8/12.5 MG, ONCE DAILY
     Route: 048
  3. SENNA ALEXANDRINA [Concomitant]
     Indication: CONSTIPATION
     Dosage: UNK
     Route: 048
  4. LORAX [Concomitant]
     Indication: INSOMNIA
     Dosage: UNK
     Route: 048
  5. LESCOL [Concomitant]
     Indication: HYPERCHOLESTEROLAEMIA
     Dosage: UNK
     Route: 065

REACTIONS (4)
  - Myocardial infarction [Recovered/Resolved]
  - Helicobacter infection [Not Recovered/Not Resolved]
  - Gastritis [Not Recovered/Not Resolved]
  - Hiatus hernia [Not Recovered/Not Resolved]
